FAERS Safety Report 17304747 (Version 1)
Quarter: 2020Q1

REPORT INFORMATION
  Report Type: Report from Study
  Country: None (occurrence: US)
  Receive Date: 20200122
  Receipt Date: 20200122
  Transmission Date: 20200409
  Serious: Yes (Other)
  Sender: FDA-Public Use
  Company Number: US-ABBVIE-18K-163-2336515-00

PATIENT
  Sex: Female
  Weight: 59.93 kg

DRUGS (7)
  1. HYDROCODONE [Suspect]
     Active Substance: HYDROCODONE
     Indication: ARTHRALGIA
     Route: 065
  2. ENALAPRIL [Concomitant]
     Active Substance: ENALAPRIL
     Indication: HYPERTENSION
  3. BABY ASPIRIN [Concomitant]
     Active Substance: ASPIRIN
     Indication: CARDIAC DISORDER
  4. METOPROLOL. [Concomitant]
     Active Substance: METOPROLOL
     Indication: HYPERTENSION
  5. HUMIRA [Suspect]
     Active Substance: ADALIMUMAB
     Indication: RHEUMATOID ARTHRITIS
     Route: 058
     Dates: start: 201608, end: 2018
  6. HUMIRA [Suspect]
     Active Substance: ADALIMUMAB
     Route: 058
     Dates: start: 20180413
  7. METFORMIN [Concomitant]
     Active Substance: METFORMIN HYDROCHLORIDE
     Indication: DIABETES MELLITUS

REACTIONS (14)
  - Arthritis infective [Recovering/Resolving]
  - Constipation [Recovering/Resolving]
  - Herpes zoster [Unknown]
  - Musculoskeletal pain [Not Recovered/Not Resolved]
  - Knee operation [Unknown]
  - Arthralgia [Recovered/Resolved]
  - Cataract [Not Recovered/Not Resolved]
  - Synovial cyst [Recovering/Resolving]
  - Weight decreased [Recovering/Resolving]
  - Walking aid user [Unknown]
  - Thrombosis [Recovering/Resolving]
  - Musculoskeletal pain [Recovered/Resolved]
  - Arthralgia [Not Recovered/Not Resolved]
  - Arthralgia [Recovering/Resolving]

NARRATIVE: CASE EVENT DATE: 2017
